FAERS Safety Report 4535081-8 (Version None)
Quarter: 2004Q4

REPORT INFORMATION
  Report Type: 
  Country: None (occurrence: None)
  Receive Date: 20041222
  Receipt Date: 20041215
  Transmission Date: 20050328
  Serious: Yes (Death, Life-Threatening, Hospitalization)
  Sender: FDA-Public Use
  Company Number: JP-ROCHE-389459

PATIENT
  Age: 22 Year
  Sex: Female

DRUGS (5)
  1. CELLCEPT [Suspect]
     Route: 048
     Dates: start: 20021222, end: 20030105
  2. CELLCEPT [Suspect]
     Route: 048
     Dates: start: 20030528, end: 20030904
  3. PREDNISOLONE [Concomitant]
  4. FK506 [Concomitant]
  5. METHOTREXATE [Concomitant]

REACTIONS (4)
  - BRAIN HERNIATION [None]
  - BRAIN NEOPLASM [None]
  - CEREBRAL TOXOPLASMOSIS [None]
  - CONVULSION [None]
